FAERS Safety Report 7754705 (Version 10)
Quarter: 2013Q1

REPORT INFORMATION
  Report Type: Spontaneous
  Country: US (occurrence: US)
  Receive Date: 20110110
  Receipt Date: 20130103
  Transmission Date: 20140127
  Serious: Yes (Hospitalization, Other)
  Sender: FDA-Public Use
  Company Number: US-PFIZER INC-2011003317

PATIENT
  Age: 55 Year
  Sex: Male
  Weight: 131 kg

DRUGS (12)
  1. VIAGRA [Suspect]
     Indication: ERECTILE DYSFUNCTION
     Dosage: 100 MG, AS NEEDED
     Route: 048
     Dates: start: 20100428
  2. VIAGRA [Interacting]
     Dosage: 100 MG, AS NEEDED
     Route: 048
     Dates: start: 201011
  3. METOPROLOL TARTRATE [Interacting]
     Dosage: UNK
  4. MICARDIS [Interacting]
     Indication: HYPERTENSION
     Dosage: 80 MG, 1X/DAY
     Route: 048
  5. CIALIS [Suspect]
     Indication: ERECTILE DYSFUNCTION
     Dosage: UNK
  6. CRESTOR [Concomitant]
     Indication: BLOOD CHOLESTEROL INCREASED
     Dosage: 10 MG, 1X/DAY
     Route: 048
  7. METOPROLOL [Concomitant]
     Indication: HYPERTENSION
     Dosage: 20 MG, 2X/DAY
  8. ZANTAC [Concomitant]
     Indication: GASTROOESOPHAGEAL REFLUX DISEASE
     Dosage: UNK
  9. PLAVIX [Concomitant]
     Indication: STENT PLACEMENT
     Dosage: UNK
     Route: 048
  10. PLAVIX [Concomitant]
     Indication: CARDIAC DISORDER
  11. BYSTOLIC [Concomitant]
     Indication: HYPERTENSION
     Dosage: 10 MG, UNK
  12. BABY ASPIRIN [Concomitant]
     Indication: ANTIPLATELET THERAPY
     Dosage: 81 MG, 1X/DAY

REACTIONS (11)
  - Bile duct stone [Not Recovered/Not Resolved]
  - Biliary tract infection [Unknown]
  - Cardiac disorder [Unknown]
  - Vision blurred [Unknown]
  - Staphylococcal infection [Recovered/Resolved]
  - Abdominal pain upper [Unknown]
  - Back pain [Unknown]
  - Malaise [Recovered/Resolved]
  - Drug interaction [Not Recovered/Not Resolved]
  - Drug interaction [Unknown]
  - Drug ineffective [Not Recovered/Not Resolved]
